FAERS Safety Report 5239395-8 (Version None)
Quarter: 2007Q1

REPORT INFORMATION
  Report Type: 
  Country: None (occurrence: None)
  Receive Date: 20070216
  Receipt Date: 20070205
  Transmission Date: 20070707
  Serious: Yes (Hospitalization)
  Sender: FDA-Public Use
  Company Number: US-AMGEN-KDL159562

PATIENT
  Sex: Male
  Weight: 99.9 kg

DRUGS (1)
  1. ENBREL [Suspect]
     Indication: PSORIASIS
     Route: 058
     Dates: start: 20050216, end: 20051201

REACTIONS (7)
  - BALANCE DISORDER [None]
  - DEMYELINATION [None]
  - DIPLOPIA [None]
  - HYPOAESTHESIA [None]
  - MEMORY IMPAIRMENT [None]
  - PARAESTHESIA [None]
  - PULMONARY ARTERIOVENOUS FISTULA [None]
